FAERS Safety Report 10359509 (Version 2)
Quarter: 2014Q3

REPORT INFORMATION
  Report Type: Report from Study
  Country: US (occurrence: US)
  Receive Date: 20140804
  Receipt Date: 20140804
  Transmission Date: 20150326
  Serious: Yes (Death, Other)
  Sender: FDA-Public Use
  Company Number: US-CELGENEUS-163-C4047-13042859

PATIENT

DRUGS (5)
  1. CC-4047 [Suspect]
     Active Substance: POMALIDOMIDE
     Indication: MYELOFIBROSIS
     Dosage: .5 MILLIGRAM
     Route: 048
  2. PREDNISONE. [Suspect]
     Active Substance: PREDNISONE
     Indication: MYELOFIBROSIS
     Dosage: 30 MILLIGRAM
     Route: 065
  3. PREDNISONE. [Suspect]
     Active Substance: PREDNISONE
     Indication: ANAEMIA
     Dosage: 15 MILLIGRAM
     Route: 065
  4. PREDNISONE. [Suspect]
     Active Substance: PREDNISONE
     Route: 065
  5. CC-4047 [Suspect]
     Active Substance: POMALIDOMIDE
     Indication: ANAEMIA

REACTIONS (20)
  - Neutropenia [Unknown]
  - Thrombocytopenia [Unknown]
  - Muscle spasms [Unknown]
  - Anaemia [Unknown]
  - Fatigue [Unknown]
  - Neuropathy peripheral [Unknown]
  - Bone marrow failure [Unknown]
  - Abdominal pain [Unknown]
  - Pollakiuria [Unknown]
  - Oedema peripheral [Unknown]
  - Vision blurred [Unknown]
  - Nausea [Unknown]
  - Death [Fatal]
  - Sepsis [Fatal]
  - Abdominal distension [Unknown]
  - Hypothyroidism [Unknown]
  - Diarrhoea [Unknown]
  - Pneumonia [Fatal]
  - Myelofibrosis [Fatal]
  - Constipation [Unknown]
